FAERS Safety Report 12858263 (Version 2)
Quarter: 2016Q4

REPORT INFORMATION
  Report Type: Spontaneous
  Country: ID (occurrence: ID)
  Receive Date: 20161018
  Receipt Date: 20161104
  Transmission Date: 20170207
  Serious: Yes (Death)
  Sender: FDA-Public Use
  Company Number: ID-JNJFOC-20161013615

PATIENT
  Age: 7 Decade
  Sex: Male

DRUGS (1)
  1. ZYTIGA [Suspect]
     Active Substance: ABIRATERONE ACETATE
     Indication: PROSTATE CANCER
     Route: 048
     Dates: start: 2015

REACTIONS (2)
  - Drug tolerance increased [Unknown]
  - Prostate cancer [Fatal]
